FAERS Safety Report 8791756 (Version 3)
Quarter: 2013Q2

REPORT INFORMATION
  Report Type: Report from Study
  Country: JP (occurrence: JP)
  Receive Date: 20120918
  Receipt Date: 20130408
  Transmission Date: 20140414
  Serious: Yes (Other)
  Sender: FDA-Public Use
  Company Number: JP-009507513-1209JPN000286

PATIENT
  Age: 52 Year
  Sex: Female
  Weight: 79 kg

DRUGS (22)
  1. PEGINTRON [Suspect]
     Indication: CHRONIC HEPATITIS C
     Dosage: UNK
     Route: 058
     Dates: start: 201201
  2. PEGINTRON [Suspect]
     Dosage: 1.2 MICROGRAM PER KILOGRAM, QW
     Route: 058
     Dates: start: 20120509
  3. PEGINTRON [Suspect]
     Dosage: 1.26 MICROGRAM PER KILOGRAM, QW
     Route: 058
     Dates: end: 20120710
  4. REBETOL [Suspect]
     Indication: CHRONIC HEPATITIS C
     Dosage: UNK
     Route: 048
     Dates: start: 201201
  5. REBETOL [Suspect]
     Dosage: 800 MG, QD
     Route: 048
     Dates: start: 20120509, end: 20120529
  6. REBETOL [Suspect]
     Dosage: 600 MG, QD
     Route: 048
     Dates: start: 20120530, end: 20120703
  7. REBETOL [Suspect]
     Dosage: 400 MG, QD
     Route: 048
     Dates: start: 20120704, end: 20120710
  8. TELAVIC [Suspect]
     Indication: CHRONIC HEPATITIS C
     Dosage: UNK
     Route: 048
     Dates: start: 201201
  9. TELAVIC [Suspect]
     Dosage: 1500 MG, QD
     Route: 048
     Dates: start: 20120509, end: 20120711
  10. SEIBULE [Concomitant]
     Indication: DIABETES MELLITUS
     Dosage: 150 MG, QD
     Route: 048
  11. NORVASC OD [Concomitant]
     Indication: HYPERTENSION
     Dosage: 10 MG, QD
     Route: 048
  12. MICARDIS [Concomitant]
     Indication: HYPERTENSION
     Dosage: 40 MG, QD, FORMULATION POR
     Route: 048
  13. BEZATOL SR [Concomitant]
     Indication: HYPERCHOLESTEROLAEMIA
     Dosage: 200 MG, QD, FORMULATION POR
     Route: 048
  14. GLIMEPIRIDE [Concomitant]
     Indication: DIABETES MELLITUS
     Dosage: 3 MG, QD FORMULATION POR
     Route: 048
  15. ACTOS [Concomitant]
     Indication: DIABETES MELLITUS
     Dosage: 15 MG, QD FORMULATION POR
     Route: 048
  16. XYZAL [Concomitant]
     Indication: RASH
     Dosage: 5 MILLIGRAMS/DAY AS NEEDED FORMULATION POR
     Route: 048
     Dates: start: 20120512, end: 20120514
  17. LOXONIN [Concomitant]
     Indication: PYREXIA
     Dosage: 60 MILLIGRAM/DAY AS NEEDED, (OTHER PURPOSES-PROPHYLAXIS)FORMULATION POR
     Route: 048
     Dates: start: 20120509, end: 20120518
  18. LOXONIN [Concomitant]
     Indication: PROPHYLAXIS
  19. ALLELOCK [Concomitant]
     Indication: RASH
     Dosage: 10 MG, QD FORMULATION POR
     Route: 048
     Dates: start: 20120514, end: 20120531
  20. CALONAL [Concomitant]
     Indication: PYREXIA
     Dosage: 400 MILLIGRAMS/DAY AS NEEDED, (OTHER PURPOSES-PROPHYLAXIS)
     Route: 048
     Dates: start: 20120518
  21. CALONAL [Concomitant]
     Indication: PROPHYLAXIS
     Dosage: 400 MG, QD, INDICATION :PROPHYLAXIS
     Route: 048
     Dates: end: 20120522
  22. REFLEX [Concomitant]
     Indication: DEPRESSION
     Dosage: 7.5 MG, QD, FORMULATION-POR
     Route: 048
     Dates: start: 20120613, end: 20120718

REACTIONS (3)
  - Retinal exudates [Recovering/Resolving]
  - Retinal haemorrhage [Recovering/Resolving]
  - Retinopathy [Recovering/Resolving]
